FAERS Safety Report 20629055 (Version 1)
Quarter: 2022Q1

REPORT INFORMATION
  Report Type: Spontaneous
  Country: CZ (occurrence: CZ)
  Receive Date: 20220323
  Receipt Date: 20220323
  Transmission Date: 20220423
  Serious: Yes (Other)
  Sender: FDA-Public Use
  Company Number: CZ-NOVARTISPH-NVSC2022CZ064162

PATIENT
  Age: 73 Year

DRUGS (1)
  1. BEOVU [Suspect]
     Active Substance: BROLUCIZUMAB-DBLL
     Indication: Choroidal neovascularisation
     Dosage: UNK, Q3MO
     Route: 065

REACTIONS (3)
  - Choroidal neovascularisation [Unknown]
  - Condition aggravated [Unknown]
  - Product use in unapproved indication [Unknown]
